FAERS Safety Report 7262821-X (Version None)
Quarter: 2011Q1

REPORT INFORMATION
  Report Type: 
  Country: None (occurrence: None)
  Receive Date: 20110130
  Receipt Date: 20100901
  Transmission Date: 20110831
  Serious: No
  Sender: FDA-Public Use
  Company Number: US-ABBOTT-10P-163-0667589-00

PATIENT
  Age: 31 Year
  Sex: Male

DRUGS (2)
  1. BENADRYL [Concomitant]
     Indication: HYPERSENSITIVITY
     Dosage: AT NIGHT
  2. HUMIRA [Suspect]
     Indication: CROHN'S DISEASE
     Dates: start: 20100810

REACTIONS (3)
  - INJECTION SITE HAEMATOMA [None]
  - FALL [None]
  - EXCORIATION [None]
